FAERS Safety Report 7998033-1 (Version None)
Quarter: 2011Q4

REPORT INFORMATION
  Report Type: 
  Country: None (occurrence: None)
  Receive Date: 20111221
  Receipt Date: 20101203
  Transmission Date: 20120403
  Serious: No
  Sender: FDA-Public Use
  Company Number: US-GLAXOSMITHKLINE-A0897667A

PATIENT
  Age: 55 Year
  Sex: Female

DRUGS (2)
  1. LOVAZA [Suspect]
     Indication: BLOOD TRIGLYCERIDES INCREASED
     Dosage: 2CAP TWICE PER DAY
     Route: 048
     Dates: start: 20101019, end: 20101119
  2. NO CONCURRENT MEDICATION [Concomitant]

REACTIONS (4)
  - PRURITUS [None]
  - DIARRHOEA [None]
  - ABDOMINAL DISTENSION [None]
  - DYSGEUSIA [None]
